FAERS Safety Report 4585969-7 (Version None)
Quarter: 2005Q1

REPORT INFORMATION
  Report Type: 
  Country: None (occurrence: None)
  Receive Date: 20050217
  Receipt Date: 20041201
  Transmission Date: 20050727
  Serious: Yes (Other)
  Sender: FDA-Public Use
  Company Number: US-ABBOTT-04P-163-0282198-00

PATIENT
  Sex: Female
  Weight: 84.444 kg

DRUGS (2)
  1. HUMIRA [Suspect]
     Indication: RHEUMATOID ARTHRITIS
     Route: 058
     Dates: start: 20041008, end: 20041117
  2. HUMIRA [Suspect]
     Route: 058
     Dates: start: 20030814, end: 20041008

REACTIONS (1)
  - OSTEOMYELITIS [None]
